FAERS Safety Report 8691838 (Version 4)
Quarter: 2012Q4

REPORT INFORMATION
  Report Type: Report from Study
  Country: DE (occurrence: DE)
  Receive Date: 20120730
  Receipt Date: 20120913
  Transmission Date: 20130627
  Serious: Yes (Other)
  Sender: FDA-Public Use
  Company Number: DE-ROCHE-1093038

PATIENT
  Age: 84 Year
  Sex: Female

DRUGS (4)
  1. RANIBIZUMAB [Suspect]
     Indication: AGE-RELATED MACULAR DEGENERATION
     Route: 050
     Dates: start: 20101103
  2. RANIBIZUMAB [Suspect]
     Route: 050
     Dates: start: 20101208
  3. RANIBIZUMAB [Suspect]
     Route: 050
     Dates: start: 20110105
  4. AZOPT [Concomitant]
     Route: 065
     Dates: start: 20120213

REACTIONS (4)
  - Optic atrophy [Not Recovered/Not Resolved]
  - Visual acuity reduced [Recovering/Resolving]
  - Malaise [Unknown]
  - Normal tension glaucoma [Unknown]
